FAERS Safety Report 7226776-6 (Version None)
Quarter: 2011Q1

REPORT INFORMATION
  Report Type: 
  Country: None (occurrence: None)
  Receive Date: 20110110
  Receipt Date: 20110110
  Transmission Date: 20110831
  Serious: No
  Sender: FDA-Public Use
  Company Number: None

PATIENT
  Sex: Male
  Weight: 28.1 kg

DRUGS (4)
  1. MERCAPTOPURINE [Suspect]
     Dosage: 2100 MG
     Dates: end: 20101229
  2. METHOTREXATE [Suspect]
     Dosage: 60 MG
     Dates: end: 20101224
  3. VINCRISTINE SULFATE [Suspect]
     Dosage: 1.5 MG
     Dates: end: 20101203
  4. PREDNISONE [Suspect]
     Dosage: 200 MG
     Dates: end: 20101207

REACTIONS (1)
  - BLOOD BILIRUBIN INCREASED [None]
